FAERS Safety Report 6025084-9 (Version None)
Quarter: 2008Q4

REPORT INFORMATION
  Report Type: 
  Country: None (occurrence: None)
  Receive Date: 20081224
  Receipt Date: 20081217
  Transmission Date: 20090506
  Serious: Yes (Death, Hospitalization)
  Sender: FDA-Public Use
  Company Number: 2008001114

PATIENT
  Age: 60 Year
  Sex: Male

DRUGS (16)
  1. ERLOTINIB (ERLOTINIB) (TABLET) (ERLOTINIB) [Suspect]
     Indication: NON-SMALL CELL LUNG CANCER
     Dosage: (150 MG, QD) ,ORAL
     Route: 048
     Dates: start: 20080327, end: 20080429
  2. MAXIPIME [Suspect]
     Dosage: (2 GM, QD) ,INTRAVENOUS
     Route: 042
     Dates: start: 20080403, end: 20080422
  3. CIPROFLOXACIN HCL [Suspect]
     Dosage: INTRAVENOUS
     Route: 042
     Dates: start: 20080423, end: 20080424
  4. MEROPEN (MEROPENEM) [Suspect]
     Dosage: INTRAVENOUS
     Route: 042
     Dates: start: 20080425, end: 20080501
  5. CIPROFLOXACIN [Suspect]
  6. MUCODYNE (CARBOCISTEINE) [Concomitant]
  7. MAGLAX (MAGNESIUM OXIDE) [Concomitant]
  8. NOVAMIN (PROCHLORPERAZINE) [Concomitant]
  9. NAIXAN (NAPROXEN SODIUM) [Concomitant]
  10. OXYCONTIN [Concomitant]
  11. OXINORM (ORGOTEIN) [Concomitant]
  12. ROPION (FLURBIPROFEN AXETIL) [Concomitant]
  13. LENDORM [Concomitant]
  14. GASMOTIN (MOSAPRIDE CITRATE) [Concomitant]
  15. VOLTAREN [Concomitant]
  16. FENTANYL CITRATE [Concomitant]

REACTIONS (9)
  - BRONCHOSTENOSIS [None]
  - DISEASE PROGRESSION [None]
  - INTERSTITIAL LUNG DISEASE [None]
  - MEDIASTINAL DISORDER [None]
  - METASTASES TO BONE [None]
  - METASTASES TO LUNG [None]
  - METASTASES TO LYMPH NODES [None]
  - NON-SMALL CELL LUNG CANCER STAGE IV [None]
  - RASH [None]
